FAERS Safety Report 5578640-6 (Version None)
Quarter: 2007Q4

REPORT INFORMATION
  Report Type: 
  Country: None (occurrence: None)
  Receive Date: 20071228
  Receipt Date: 20071228
  Transmission Date: 20080405
  Serious: Yes (Hospitalization)
  Sender: FDA-Public Use
  Company Number: None

PATIENT
  Age: 79 Year
  Sex: Male
  Weight: 63.9572 kg

DRUGS (2)
  1. TOPOTECAN 4MG/M2 IV Q WEEK [Suspect]
     Indication: METASTATIC GASTRIC CANCER
     Dosage: 7 MG IV
     Route: 042
     Dates: start: 20071213
  2. TOPOTECAN 4MG/M2 IV Q WEEK [Suspect]
     Indication: METASTATIC GASTRIC CANCER
     Dosage: 7 MG IV
     Route: 042
     Dates: start: 20071220

REACTIONS (2)
  - FEBRILE NEUTROPENIA [None]
  - PANCYTOPENIA [None]
